FAERS Safety Report 12447666 (Version 2)
Quarter: 2016Q3

REPORT INFORMATION
  Report Type: Spontaneous
  Country: DE (occurrence: DE)
  Receive Date: 20160608
  Receipt Date: 20160725
  Transmission Date: 20161109
  Serious: Yes (Other)
  Sender: FDA-Public Use
  Company Number: DE-BAYER-2014-134724

PATIENT
  Age: 47 Year
  Sex: Female
  Weight: 57 kg

DRUGS (1)
  1. JAYDESS [Suspect]
     Active Substance: LEVONORGESTREL
     Indication: MENORRHAGIA
     Dosage: 14 MCG/24HR, CONT
     Route: 015
     Dates: start: 201406, end: 20160520

REACTIONS (11)
  - Skin cancer [Not Recovered/Not Resolved]
  - Constipation [Recovering/Resolving]
  - Therapeutic response unexpected [None]
  - Mucosal dryness [Not Recovered/Not Resolved]
  - Sleep disorder [Recovering/Resolving]
  - Alopecia [Recovering/Resolving]
  - Procedural pain [Recovered/Resolved]
  - Metrorrhagia [Not Recovered/Not Resolved]
  - Product use issue [Not Recovered/Not Resolved]
  - Acne [Not Recovered/Not Resolved]
  - Skin disorder [None]

NARRATIVE: CASE EVENT DATE: 201406
